FAERS Safety Report 9967890 (Version 1)
Quarter: 2014Q1

REPORT INFORMATION
  Report Type: Report from Study
  Country: US (occurrence: US)
  Receive Date: 20140306
  Receipt Date: 20140306
  Transmission Date: 20141002
  Serious: No
  Sender: FDA-Public Use
  Company Number: US-ABBVIE-13P-163-1147572-00

PATIENT
  Age: 49 Year
  Sex: Female

DRUGS (10)
  1. HUMIRA [Suspect]
     Indication: RHEUMATOID ARTHRITIS
     Dates: start: 20130728
  2. COPAXONE [Concomitant]
     Indication: MULTIPLE SCLEROSIS
     Dosage: 20 MILLIGRAMS DAILY
  3. WARFARIN [Concomitant]
     Indication: FACTOR V LEIDEN MUTATION
     Dosage: 8 TO 10 MILLIGRAMS
  4. PERCOCET [Concomitant]
     Indication: PAIN
  5. SAVELLA [Concomitant]
     Indication: FIBROMYALGIA
  6. CLONAZEPAM [Concomitant]
     Indication: RESTLESS LEGS SYNDROME
  7. TRIAMTERENE [Concomitant]
     Indication: OEDEMA
     Dosage: 37.5/2.5
  8. AMIRIX [Concomitant]
     Indication: PAIN
  9. TRIAZOLAM [Concomitant]
     Indication: INSOMNIA
  10. LYRICA [Concomitant]
     Indication: NEUROPATHY PERIPHERAL
     Dosage: 20 MILLIGRAMS DAILY

REACTIONS (2)
  - Arthralgia [Not Recovered/Not Resolved]
  - Headache [Not Recovered/Not Resolved]
